FAERS Safety Report 7364122-8 (Version None)
Quarter: 2011Q1

REPORT INFORMATION
  Report Type: 
  Country: None (occurrence: None)
  Receive Date: 20110321
  Receipt Date: 20110316
  Transmission Date: 20110831
  Serious: Yes (Death, Other)
  Sender: FDA-Public Use
  Company Number: PHHY2011FR21869

PATIENT
  Sex: Male

DRUGS (6)
  1. EXELON [Suspect]
     Indication: DEMENTIA ALZHEIMER'S TYPE
     Dosage: 9.5 MG, QD
     Route: 062
  2. ATORVASTATIN CALCIUM [Concomitant]
     Dosage: UNK
  3. MEMANTINE HCL [Suspect]
     Indication: DEMENTIA ALZHEIMER'S TYPE
     Dosage: 20 MG, QD
     Route: 048
  4. VALPROATE SODIUM [Concomitant]
     Dosage: UNK
  5. ATENOLOL [Suspect]
     Dosage: 25 MG, QD
     Route: 048
  6. KARDEGIC [Concomitant]
     Dosage: UNK

REACTIONS (9)
  - DEATH [None]
  - ASTHENIA [None]
  - PALLOR [None]
  - HYPOTENSION [None]
  - HYPOTONIA [None]
  - GAIT DISTURBANCE [None]
  - EPILEPSY [None]
  - HYPERHIDROSIS [None]
  - C-REACTIVE PROTEIN INCREASED [None]
